FAERS Safety Report 4588502-9 (Version None)
Quarter: 2005Q1

REPORT INFORMATION
  Report Type: 
  Country: None (occurrence: None)
  Receive Date: 20050222
  Receipt Date: 20050216
  Transmission Date: 20050727
  Serious: Yes (Hospitalization)
  Sender: FDA-Public Use
  Company Number: PHBS2005BR02407

PATIENT
  Age: 0 Day
  Sex: Female
  Weight: 2 kg

DRUGS (2)
  1. ALDOMET [Suspect]
     Route: 064
  2. APRESOLINE [Suspect]
     Route: 064

REACTIONS (7)
  - ARRHYTHMIA NEONATAL [None]
  - CAESAREAN SECTION [None]
  - CONVULSION [None]
  - DRUG EXPOSURE DURING PREGNANCY [None]
  - INFECTION [None]
  - MENINGITIS [None]
  - PNEUMONIA [None]
